FAERS Safety Report 17543704 (Version 1)
Quarter: 2020Q1

REPORT INFORMATION
  Report Type: Spontaneous
  Country: PL (occurrence: PL)
  Receive Date: 20200316
  Receipt Date: 20200316
  Transmission Date: 20200409
  Serious: Yes (Life-Threatening, Hospitalization)
  Sender: FDA-Public Use
  Company Number: PL-TEVA-2020-PL-1199375

PATIENT
  Age: 77 Year
  Sex: Female
  Weight: 74 kg

DRUGS (1)
  1. PACLITAXEL. [Suspect]
     Active Substance: PACLITAXEL
     Indication: UTERINE CANCER
     Route: 065
     Dates: start: 20191202, end: 20191202

REACTIONS (2)
  - Malaise [Recovered/Resolved]
  - Dyspnoea [Recovered/Resolved]
